FAERS Safety Report 23154624 (Version 1)
Quarter: 2023Q4

REPORT INFORMATION
  Report Type: Spontaneous
  Country: CO (occurrence: CO)
  Receive Date: 20231107
  Receipt Date: 20231107
  Transmission Date: 20240109
  Serious: Yes (Hospitalization, Other)
  Sender: FDA-Public Use
  Company Number: CO-SA-2023SA339531

PATIENT
  Age: 19 Year
  Sex: Male
  Weight: 85 kg

DRUGS (1)
  1. DUPILUMAB [Suspect]
     Active Substance: DUPILUMAB
     Indication: Dermatitis atopic
     Dosage: 300 MG/EVERY OTHER WEEK
     Route: 058
     Dates: start: 20211001

REACTIONS (1)
  - Schizophrenia [Unknown]
